FAERS Safety Report 22059177 (Version 1)
Quarter: 2023Q1

REPORT INFORMATION
  Report Type: Spontaneous
  Country: US (occurrence: None)
  Receive Date: 20230302
  Receipt Date: 20230302
  Transmission Date: 20230418
  Serious: Yes (Other)
  Sender: FDA-Public Use
  Company Number: None

PATIENT
  Age: 30 Year
  Sex: Female
  Weight: 74.25 kg

DRUGS (3)
  1. NURTEC ODT [Suspect]
     Active Substance: RIMEGEPANT SULFATE
     Indication: Migraine
     Dosage: 8 TABLETS AS NEEDED SUBGLINGUAL
     Route: 060
  2. Multi-vitamins [Concomitant]
  3. EXCEDRIN [Concomitant]
     Active Substance: ACETAMINOPHEN\ASPIRIN\CAFFEINE

REACTIONS (9)
  - Panic attack [None]
  - Heart rate increased [None]
  - Dyspnoea [None]
  - Disorientation [None]
  - Tremor [None]
  - Blood pressure decreased [None]
  - Dizziness [None]
  - Fear [None]
  - Anxiety [None]

NARRATIVE: CASE EVENT DATE: 20221219
